FAERS Safety Report 19819404 (Version 1)
Quarter: 2021Q3

REPORT INFORMATION
  Report Type: Spontaneous
  Country: US (occurrence: US)
  Receive Date: 20210913
  Receipt Date: 20210913
  Transmission Date: 20211014
  Serious: No
  Sender: FDA-Public Use
  Company Number: US-STRONGBRIDGE BIOPHARMA-2021-STR-000304

PATIENT
  Age: 12 Year
  Sex: Male

DRUGS (2)
  1. KEVEYIS [Suspect]
     Active Substance: DICHLORPHENAMIDE
     Indication: FAMILIAL PERIODIC PARALYSIS
     Dosage: 150 MG, QD (50 MG QAM, 100 MG QPM)
     Route: 048
     Dates: start: 20210702
  2. COVID?19 VACCINE [Concomitant]
     Indication: IMMUNISATION

REACTIONS (3)
  - Exposure to SARS-CoV-2 [Unknown]
  - Off label use [Unknown]
  - Abdominal pain upper [Unknown]

NARRATIVE: CASE EVENT DATE: 20210830
